FAERS Safety Report 4386456-1 (Version None)
Quarter: 2004Q2

REPORT INFORMATION
  Report Type: 
  Country: None (occurrence: None)
  Receive Date: 20040623
  Receipt Date: 20040609
  Transmission Date: 20050107
  Serious: Yes (Hospitalization, Disabling)
  Sender: FDA-Public Use
  Company Number: 2004IM000304

PATIENT
  Age: 42 Year
  Sex: Male

DRUGS (2)
  1. ADVAFERON (A643_INTERFERON ALFACON-1) [Suspect]
     Indication: CHRONIC HEPATITIS
     Dosage: 18 MU; QD; SUBCUTANEOUS
     Route: 058
     Dates: start: 20020708, end: 20020902
  2. INSULIN [Concomitant]

REACTIONS (3)
  - DELIRIUM [None]
  - DELUSION [None]
  - HALLUCINATION [None]
